FAERS Safety Report 22250676 (Version 1)
Quarter: 2023Q2

REPORT INFORMATION
  Report Type: Report from Study
  Country: CN (occurrence: CN)
  Receive Date: 20230425
  Receipt Date: 20230425
  Transmission Date: 20230722
  Serious: Yes (Hospitalization, Other)
  Sender: FDA-Public Use
  Company Number: CN-TAKEDA-2023TUS040537

PATIENT
  Age: 29 Year
  Sex: Male
  Weight: 80 kg

DRUGS (9)
  1. VEDOLIZUMAB [Suspect]
     Active Substance: VEDOLIZUMAB
     Indication: Colitis ulcerative
     Dosage: 300 MILLIGRAM
     Route: 042
     Dates: start: 20220910
  2. POTASSIUM ASPARTATE [Concomitant]
     Active Substance: POTASSIUM ASPARTATE
     Indication: Prophylaxis against dehydration
     Dosage: 20 MILLILITER, QD
     Route: 042
     Dates: start: 20230331, end: 20230402
  3. INVERT SUGAR AND ELECTROLYTES [Concomitant]
     Indication: Prophylaxis against dehydration
     Dosage: 500 MILLILITER, QD
     Route: 042
     Dates: start: 20230331, end: 20230402
  4. ETIMICIN SULFATE [Concomitant]
     Active Substance: ETIMICIN SULFATE
     Indication: Antiinflammatory therapy
     Dosage: 6 MILLILITER, QD
     Route: 042
     Dates: start: 20230331, end: 20230402
  5. SOMATOSTATIN [Concomitant]
     Active Substance: SOMATOSTATIN
     Indication: Haemorrhage prophylaxis
     Dosage: 6 MILLIGRAM, QD
     Route: 042
     Dates: start: 20230331, end: 20230403
  6. POTASSIUM CHLORIDE [Concomitant]
     Active Substance: POTASSIUM CHLORIDE
     Indication: Mineral supplementation
     Dosage: 1 GRAM, QD
     Route: 042
     Dates: start: 20230403, end: 20230404
  7. MESALAMINE [Concomitant]
     Active Substance: MESALAMINE
     Indication: Inflammatory bowel disease
     Dosage: 2 GRAM
     Route: 048
     Dates: start: 20080331
  8. MESALAMINE [Concomitant]
     Active Substance: MESALAMINE
     Dosage: UNK
     Dates: start: 2008
  9. Compound amino acid injection (14aa) [Concomitant]
     Indication: Prophylaxis against dehydration
     Dosage: 500 MILLILITER, QD
     Route: 042
     Dates: start: 20230331, end: 20230402

REACTIONS (2)
  - Large intestine polyp [Recovered/Resolved]
  - Hyperuricaemia [Not Recovered/Not Resolved]

NARRATIVE: CASE EVENT DATE: 20230329
